FAERS Safety Report 18634898 (Version 1)
Quarter: 2020Q4

REPORT INFORMATION
  Report Type: Spontaneous
  Country: AU (occurrence: AU)
  Receive Date: 20201218
  Receipt Date: 20201218
  Transmission Date: 20210114
  Serious: Yes (Death, Hospitalization, Other)
  Sender: FDA-Public Use
  Company Number: AU-PFIZER INC-2020491726

PATIENT
  Age: 57 Year
  Sex: Male

DRUGS (2)
  1. PACLITAXEL. [Suspect]
     Active Substance: PACLITAXEL
     Dosage: UNK TWO DOSES
     Dates: start: 20190204
  2. PACLITAXEL. [Suspect]
     Active Substance: PACLITAXEL
     Indication: CHEMOTHERAPY
     Dosage: UNK TWO DOSES
     Dates: start: 20190130, end: 2019

REACTIONS (3)
  - Febrile neutropenia [Fatal]
  - Stenotrophomonas infection [Fatal]
  - Renal impairment [Fatal]

NARRATIVE: CASE EVENT DATE: 2019
